FAERS Safety Report 22966510 (Version 5)
Quarter: 2024Q1

REPORT INFORMATION
  Report Type: Spontaneous
  Country: US (occurrence: US)
  Receive Date: 20230921
  Receipt Date: 20240328
  Transmission Date: 20240410
  Serious: No
  Sender: FDA-Public Use
  Company Number: US-SA-SAC20230914001020

PATIENT
  Age: 56 Year
  Sex: Female

DRUGS (3)
  1. DUPIXENT [Suspect]
     Active Substance: DUPILUMAB
     Indication: Dermatitis atopic
     Dosage: 600 MG, 1X (2 PENS UNDER THE SKIN ON DAY 1)
     Route: 058
     Dates: start: 20230918, end: 20230918
  2. DUPIXENT [Suspect]
     Active Substance: DUPILUMAB
     Indication: Eczema
     Dosage: 300 MG, QOW
     Route: 058
     Dates: start: 202310
  3. DUPIXENT [Suspect]
     Active Substance: DUPILUMAB
     Dosage: 600 MG, 1X
     Route: 058
     Dates: start: 20231119, end: 20231119

REACTIONS (10)
  - Injection site pain [Not Recovered/Not Resolved]
  - Product administered at inappropriate site [Unknown]
  - Injection site swelling [Unknown]
  - Eczema [Unknown]
  - Rash [Unknown]
  - Scratch [Unknown]
  - Pruritus [Unknown]
  - Intentional dose omission [Unknown]
  - Product dose omission in error [Unknown]
  - Inappropriate schedule of product administration [Unknown]

NARRATIVE: CASE EVENT DATE: 20231001
